FAERS Safety Report 9531486 (Version 2)
Quarter: 2013Q3

REPORT INFORMATION
  Report Type: Report from Study
  Country: US (occurrence: US)
  Receive Date: 20130918
  Receipt Date: 20130918
  Transmission Date: 20140515
  Serious: Yes (Hospitalization)
  Sender: FDA-Public Use
  Company Number: US-ABBVIE-13P-163-1123979-00

PATIENT
  Age: 55 Year
  Sex: Male
  Weight: 83.99 kg

DRUGS (13)
  1. HUMIRA [Suspect]
     Indication: PSORIASIS
     Route: 058
     Dates: start: 201108, end: 201307
  2. RISPERIDONE [Concomitant]
     Indication: INSOMNIA
  3. SERTRALINE [Concomitant]
     Indication: DEPRESSION
  4. DIAZEPAM [Concomitant]
     Indication: ANXIETY
  5. METOPROLOL [Concomitant]
     Indication: PRODUCT USED FOR UNKNOWN INDICATION
  6. CITALOPRAM [Concomitant]
     Indication: DEPRESSION
  7. TRAMADOL [Concomitant]
     Indication: PAIN
  8. HYDROCHLOROTHIAZIDE [Concomitant]
     Indication: HYPOGONADISM
  9. LEVOTHYROXINE [Concomitant]
     Indication: HYPOTHYROIDISM
  10. HYDROCORTISONE [Concomitant]
     Indication: HYPOTHYROIDISM
  11. LYRICA [Concomitant]
     Indication: FIBROMYALGIA
  12. MELATONIN [Concomitant]
     Indication: INSOMNIA
     Dosage: PRN
  13. PROTOPIC [Concomitant]
     Indication: PSORIASIS
     Dosage: PRN

REACTIONS (10)
  - Loss of consciousness [Recovered/Resolved]
  - Fall [Recovered/Resolved]
  - Tibia fracture [Recovering/Resolving]
  - Pain in extremity [Recovering/Resolving]
  - Lower limb fracture [Recovering/Resolving]
  - Contusion [Recovered/Resolved]
  - Incision site erythema [Recovering/Resolving]
  - Incision site oedema [Recovering/Resolving]
  - Incision site pain [Recovering/Resolving]
  - Incision site infection [Recovering/Resolving]
